FAERS Safety Report 5128707-1 (Version None)
Quarter: 2006Q4

REPORT INFORMATION
  Report Type: 
  Country: None (occurrence: None)
  Receive Date: 20061017
  Receipt Date: 20061011
  Transmission Date: 20070319
  Serious: Yes (Other)
  Sender: FDA-Public Use
  Company Number: FR-AVENTIS-200613552FR

PATIENT
  Age: 71 Year
  Sex: Female

DRUGS (1)
  1. KETEK [Suspect]
     Indication: INFECTION
     Route: 048
     Dates: end: 20061003

REACTIONS (1)
  - NEUTROPENIA [None]
